FAERS Safety Report 17172740 (Version 2)
Quarter: 2019Q4

REPORT INFORMATION
  Report Type: Spontaneous
  Country: SE (occurrence: SE)
  Receive Date: 20191218
  Receipt Date: 20191231
  Transmission Date: 20200122
  Serious: Yes (Other)
  Sender: FDA-Public Use
  Company Number: SE-CANTON LABORATORIES, LLC-2077991

PATIENT
  Age: 36 Year
  Sex: Female
  Weight: 73 kg

DRUGS (2)
  1. NAPROSYN [Suspect]
     Active Substance: NAPROXEN
     Indication: DYSMENORRHOEA
     Route: 065
     Dates: start: 19960101, end: 19991001
  2. VOLTAREN [Suspect]
     Active Substance: DICLOFENAC SODIUM
     Route: 065
     Dates: start: 19960101, end: 19991001

REACTIONS (4)
  - Diarrhoea [Recovered/Resolved]
  - Pruritus genital [Recovered/Resolved]
  - Vaginal ulceration [Recovered/Resolved]
  - Mouth ulceration [Recovered/Resolved]
